FAERS Safety Report 16183948 (Version 1)
Quarter: 2019Q2

REPORT INFORMATION
  Report Type: Spontaneous
  Country: BR (occurrence: BR)
  Receive Date: 20190411
  Receipt Date: 20190411
  Transmission Date: 20190711
  Serious: Yes (Other)
  Sender: FDA-Public Use
  Company Number: BR-SA-2019SA094621

PATIENT
  Sex: Female
  Weight: 65 kg

DRUGS (3)
  1. CLEXANE [Suspect]
     Active Substance: ENOXAPARIN SODIUM
     Dosage: 1 DF, QD
     Route: 058
     Dates: start: 20190330, end: 20190402
  2. CLEXANE [Suspect]
     Active Substance: ENOXAPARIN SODIUM
     Indication: HYPERCOAGULATION
     Dosage: 1 DF, QD (1 SYRINGE)
     Route: 058
     Dates: start: 201811
  3. CLEXANE [Suspect]
     Active Substance: ENOXAPARIN SODIUM
     Indication: THROMBOSIS
     Dosage: 1 DF, QD (1 SYRINGE)
     Route: 058
     Dates: start: 201812, end: 201812

REACTIONS (7)
  - Hypersensitivity [Unknown]
  - Exposure during pregnancy [Unknown]
  - Application site reaction [Unknown]
  - Erythema [Unknown]
  - Abortion [Unknown]
  - Application site pruritus [Unknown]
  - Hypersensitivity [Unknown]

NARRATIVE: CASE EVENT DATE: 201812
